FAERS Safety Report 18065884 (Version 1)
Quarter: 2020Q3

REPORT INFORMATION
  Report Type: Report from Study
  Country: JP (occurrence: JP)
  Receive Date: 20200724
  Receipt Date: 20200724
  Transmission Date: 20201103
  Serious: Yes (Other)
  Sender: FDA-Public Use
  Company Number: JP-VIIV HEALTHCARE LIMITED-JP2005000036

PATIENT
  Age: 38 Year
  Sex: Male

DRUGS (14)
  1. KALETRA [Suspect]
     Active Substance: LOPINAVIR\RITONAVIR
     Dosage: 4 DOSAGE FORM
     Route: 065
     Dates: start: 20061114, end: 20080901
  2. KALETRA [Suspect]
     Active Substance: LOPINAVIR\RITONAVIR
     Indication: HIV INFECTION
     Dosage: 6 DOSAGE FORM
     Route: 065
     Dates: start: 20030422, end: 20061113
  3. RIBAVIRIN. [Suspect]
     Active Substance: RIBAVIRIN
     Indication: HEPATITIS C
     Dosage: 800 MG
     Route: 065
     Dates: start: 20090407, end: 20120423
  4. TENOFOVIR DISOPROXIL FUMARATE. [Suspect]
     Active Substance: TENOFOVIR DISOPROXIL FUMARATE
     Indication: HIV INFECTION
     Dosage: 300 MG, QD
     Route: 048
     Dates: start: 20040120, end: 20070514
  5. EPIVIR [Suspect]
     Active Substance: LAMIVUDINE
     Indication: HIV INFECTION
     Dosage: 150 MG
     Route: 065
     Dates: start: 20041104, end: 20050427
  6. EPIVIR [Suspect]
     Active Substance: LAMIVUDINE
     Dosage: 300 MG
     Route: 065
     Dates: start: 20050428, end: 20070514
  7. AMOBAN [Concomitant]
     Active Substance: ZOPICLONE
     Indication: INSOMNIA
     Dosage: 7.5 MG
     Route: 065
     Dates: start: 20030401
  8. EMTRICITABINE/TENOFOVIR DISOPROXIL FUMARATE [Suspect]
     Active Substance: EMTRICITABINE\TENOFOVIR DISOPROXIL FUMARATE
     Indication: HIV INFECTION
     Dosage: 1 DOSAGE FORM, QD
     Route: 048
     Dates: start: 20070515
  9. VIRAMUNE [Concomitant]
     Active Substance: NEVIRAPINE
     Dosage: 400 MG
     Route: 065
     Dates: start: 20030506, end: 20040119
  10. VIDEX EC [Suspect]
     Active Substance: DIDANOSINE
     Indication: HIV INFECTION
     Dosage: 400 MG
     Route: 065
     Dates: start: 20030422, end: 20041103
  11. PEGASYS [Suspect]
     Active Substance: PEGINTERFERON ALFA-2A
     Indication: HEPATITIS C
     Dosage: 45 UG
     Route: 065
     Dates: start: 20090401, end: 20090727
  12. VIRAMUNE [Concomitant]
     Active Substance: NEVIRAPINE
     Indication: HIV INFECTION
     Dosage: 200 MG
     Route: 065
     Dates: start: 20030422
  13. MILTAX [Concomitant]
     Active Substance: VIDARABINE
     Indication: HAEMARTHROSIS
     Dosage: UNK
     Route: 065
     Dates: start: 20040413
  14. PEGASYS [Suspect]
     Active Substance: PEGINTERFERON ALFA-2A
     Dosage: 30 UG
     Route: 065
     Dates: start: 20090728, end: 20130401

REACTIONS (14)
  - Liver function test increased [Not Recovered/Not Resolved]
  - Blood triglycerides increased [Recovered/Resolved]
  - Diarrhoea [Recovering/Resolving]
  - Diarrhoea [Recovering/Resolving]
  - Hepatic function abnormal [Recovered/Resolved]
  - Haemorrhagic diathesis [Recovering/Resolving]
  - Hepatic function abnormal [Recovering/Resolving]
  - Diarrhoea [Recovering/Resolving]
  - Haemorrhagic diathesis [Recovering/Resolving]
  - White blood cell count decreased [Recovered/Resolved]
  - Blood bilirubin increased [Recovered/Resolved]
  - Hepatic function abnormal [Not Recovered/Not Resolved]
  - Optic nerve cupping [Recovering/Resolving]
  - Periarthritis [Recovering/Resolving]

NARRATIVE: CASE EVENT DATE: 200402
